FAERS Safety Report 7864267-X (Version None)
Quarter: 2011Q4

REPORT INFORMATION
  Report Type: 
  Country: None (occurrence: None)
  Receive Date: 20111028
  Receipt Date: 20111017
  Transmission Date: 20120403
  Serious: Yes (Hospitalization)
  Sender: FDA-Public Use
  Company Number: IT-JNJFOC-20111006603

PATIENT
  Sex: Female
  Weight: 40.8 kg

DRUGS (3)
  1. REMICADE [Suspect]
     Indication: CROHN'S DISEASE
     Route: 042
     Dates: start: 20110505
  2. REMICADE [Suspect]
     Route: 042
     Dates: start: 20110824, end: 20110824
  3. SULFASALAZINE [Concomitant]
     Indication: ARTHRITIS

REACTIONS (1)
  - INFUSION RELATED REACTION [None]
